FAERS Safety Report 9510504 (Version 1)
Quarter: 2013Q3

REPORT INFORMATION
  Report Type: Spontaneous
  Country: IT (occurrence: IT)
  Receive Date: 20130909
  Receipt Date: 20130909
  Transmission Date: 20140515
  Serious: Yes (Hospitalization)
  Sender: FDA-Public Use
  Company Number: IT-ELI_LILLY_AND_COMPANY-IT201308009381

PATIENT
  Age: 54 Year
  Sex: Male
  Weight: 56 kg

DRUGS (6)
  1. ALIMTA [Suspect]
     Indication: LUNG ADENOCARCINOMA
     Dosage: 795 MG PER CYCLE
     Route: 042
     Dates: start: 20130129
  2. CISPLATIN [Suspect]
     Indication: LUNG ADENOCARCINOMA
     Dosage: 119.3 MG PER CYCLE
     Route: 042
     Dates: start: 20130129
  3. SOLDESAM [Concomitant]
     Dosage: 8 MG, UNK
     Route: 042
     Dates: start: 20130129, end: 20130313
  4. RANIDIL [Concomitant]
     Dosage: 50 MG, UNK
     Route: 042
     Dates: start: 20130129, end: 20130313
  5. ONDANSETRON [Concomitant]
     Indication: PROPHYLAXIS OF NAUSEA AND VOMITING
     Dosage: 8 MG, UNK
     Route: 042
     Dates: start: 20130129, end: 20130313
  6. LASIX [Concomitant]
     Dosage: 20 MG, UNK
     Route: 042
     Dates: start: 20130129, end: 20130313

REACTIONS (8)
  - Skin discolouration [Unknown]
  - Dyspnoea [Unknown]
  - Chest pain [Unknown]
  - Abdominal pain [Unknown]
  - Vomiting [Unknown]
  - Nausea [Unknown]
  - Stomatitis [Unknown]
  - Asthenia [Unknown]
